FAERS Safety Report 4312851-2 (Version None)
Quarter: 2004Q1

REPORT INFORMATION
  Report Type: 
  Country: None (occurrence: None)
  Receive Date: 20040304
  Receipt Date: 20040218
  Transmission Date: 20041129
  Serious: Yes (Death, Hospitalization)
  Sender: FDA-Public Use
  Company Number: US065438

PATIENT
  Age: 80 Year
  Sex: Female

DRUGS (16)
  1. KINERET [Suspect]
     Indication: RHEUMATOID ARTHRITIS
     Dosage: 100 MG, 1 IN 1 DAYS, SC
     Route: 058
     Dates: start: 20020701, end: 20040122
  2. METHOTREXATE [Concomitant]
  3. PREDNISONE [Concomitant]
  4. FOLIC ACID [Concomitant]
  5. SPIRONOLACTONE [Concomitant]
  6. FUROSEMIDE [Concomitant]
  7. LISINOPRIL [Concomitant]
  8. CODEINE [Concomitant]
  9. CODEINE PHOSPHATE [Concomitant]
  10. ACETAMINOPHEN [Concomitant]
  11. SIMVASTATIN [Concomitant]
  12. NITROFURANTOIN [Concomitant]
  13. DIGOXIN [Concomitant]
  14. VENLAFAXINE HCL [Concomitant]
  15. CLONAZEPAM [Concomitant]
  16. LORAZEPAM [Concomitant]

REACTIONS (3)
  - CARDIAC FAILURE CONGESTIVE [None]
  - MYOCARDIAL INFARCTION [None]
  - PULMONARY OEDEMA [None]
